FAERS Safety Report 25352123 (Version 3)
Quarter: 2025Q3

REPORT INFORMATION
  Report Type: Spontaneous
  Country: US (occurrence: US)
  Receive Date: 20250523
  Receipt Date: 20250910
  Transmission Date: 20251021
  Serious: No
  Sender: SUNOVION
  Company Number: US-SMPA-2025SPA005311AA

PATIENT
  Age: 78 Year
  Sex: Male

DRUGS (3)
  1. ORGOVYX [Suspect]
     Active Substance: RELUGOLIX
     Indication: Prostate cancer
     Dosage: 360 MG, SINGLE
     Route: 048
     Dates: start: 20250210, end: 20250210
  2. ORGOVYX [Suspect]
     Active Substance: RELUGOLIX
     Dosage: 120 MG, QD
     Route: 048
     Dates: start: 20250211
  3. BEPREVE [Concomitant]
     Active Substance: BEPOTASTINE BESILATE
     Route: 047

REACTIONS (7)
  - Vomiting [Unknown]
  - Pyrexia [Unknown]
  - Fall [Unknown]
  - Urinary tract infection [Unknown]
  - Insomnia [Unknown]
  - Hot flush [Unknown]
  - Extra dose administered [Unknown]

NARRATIVE: CASE EVENT DATE: 20250603
